FAERS Safety Report 7775616-5 (Version None)
Quarter: 2011Q3

REPORT INFORMATION
  Report Type: 
  Country: None (occurrence: None)
  Receive Date: 20110923
  Receipt Date: 20110922
  Transmission Date: 20111222
  Serious: Yes (Hospitalization)
  Sender: FDA-Public Use
  Company Number: US-GLAXOSMITHKLINE-A0808133A

PATIENT
  Age: 40 Year
  Sex: Male
  Weight: 112.7 kg

DRUGS (4)
  1. METFORMIN HCL [Concomitant]
  2. AVANDIA [Suspect]
     Indication: TYPE 2 DIABETES MELLITUS
     Dosage: 4MG TWICE PER DAY
     Route: 048
     Dates: start: 20040723, end: 20070714
  3. METOPROLOL SUCCINATE [Concomitant]
  4. AMARYL [Concomitant]

REACTIONS (3)
  - MYOCARDIAL INFARCTION [None]
  - CORONARY ARTERY DISEASE [None]
  - HYPERLIPIDAEMIA [None]
